FAERS Safety Report 13305478 (Version 2)
Quarter: 2017Q1

REPORT INFORMATION
  Report Type: Spontaneous
  Country: US (occurrence: US)
  Receive Date: 20170308
  Receipt Date: 20170310
  Transmission Date: 20170428
  Serious: No
  Sender: FDA-Public Use
  Company Number: US-GLAXOSMITHKLINE-US2017031942

PATIENT
  Sex: Male

DRUGS (1)
  1. CEFTIN [Suspect]
     Active Substance: CEFUROXIME AXETIL
     Indication: OTITIS MEDIA
     Dosage: 4 ML, BID
     Route: 048

REACTIONS (1)
  - Incorrect product storage [Unknown]
